FAERS Safety Report 10608922 (Version 2)
Quarter: 2015Q1

REPORT INFORMATION
  Report Type: Report from Study
  Country: NL (occurrence: NL)
  Receive Date: 20141125
  Receipt Date: 20150217
  Transmission Date: 20150720
  Serious: Yes (Hospitalization)
  Sender: FDA-Public Use
  Company Number: NL-GILEAD-2014-0124089

PATIENT
  Age: 24 Year
  Sex: Female

DRUGS (1)
  1. AZTREONAM LYSINE [Suspect]
     Active Substance: AZTREONAM LYSINE
     Indication: CYSTIC FIBROSIS
     Dosage: 3 DF, QD
     Route: 065
     Dates: start: 20140731, end: 20140821

REACTIONS (3)
  - Rash macular [Unknown]
  - Unevaluable event [Unknown]
  - Dyspnoea [Unknown]
